FAERS Safety Report 24370049 (Version 1)
Quarter: 2024Q3

REPORT INFORMATION
  Report Type: Report from Study
  Country: US (occurrence: US)
  Receive Date: 20240927
  Receipt Date: 20240927
  Transmission Date: 20241017
  Serious: No
  Sender: ROCHE
  Company Number: US-ROCHE-3555965

PATIENT
  Age: 64 Year
  Sex: Male

DRUGS (6)
  1. LUCENTIS [Suspect]
     Active Substance: RANIBIZUMAB
     Indication: Type 2 diabetes mellitus
     Route: 042
  2. LUCENTIS [Suspect]
     Active Substance: RANIBIZUMAB
     Indication: Diabetic retinopathy
  3. LUCENTIS [Suspect]
     Active Substance: RANIBIZUMAB
     Indication: Macular oedema
  4. EYLEA [Concomitant]
     Active Substance: AFLIBERCEPT
  5. AMOXICILLIN [Concomitant]
     Active Substance: AMOXICILLIN
     Dosage: TAKE 1 CAPSULE BY MOUTH EVERY 8 HOURS UNTIL GONE
     Route: 048
  6. LATANOPROST [Concomitant]
     Active Substance: LATANOPROST

REACTIONS (2)
  - Off label use [Unknown]
  - No adverse event [Unknown]
